FAERS Safety Report 4939723-4 (Version None)
Quarter: 2006Q1

REPORT INFORMATION
  Report Type: 
  Country: None (occurrence: None)
  Receive Date: 20060310
  Receipt Date: 20060227
  Transmission Date: 20060701
  Serious: Yes (Hospitalization)
  Sender: FDA-Public Use
  Company Number: US-MERCK-0602USA05953

PATIENT
  Age: 52 Year
  Sex: Male
  Weight: 82 kg

DRUGS (2)
  1. VIOXX [Suspect]
     Indication: ARTHRALGIA
     Route: 048
     Dates: start: 20000401, end: 20040901
  2. VIOXX [Suspect]
     Route: 048
     Dates: start: 20000401, end: 20040901

REACTIONS (4)
  - AMNESIA [None]
  - CEREBROVASCULAR ACCIDENT [None]
  - INSOMNIA [None]
  - LOSS OF LIBIDO [None]
